FAERS Safety Report 7384281-0 (Version None)
Quarter: 2011Q1

REPORT INFORMATION
  Report Type: 
  Country: None (occurrence: None)
  Receive Date: 20110330
  Receipt Date: 20110324
  Transmission Date: 20110831
  Serious: Yes (Hospitalization)
  Sender: FDA-Public Use
  Company Number: FR-MERCK-1103FRA00139

PATIENT
  Age: 7 Year
  Sex: Female
  Weight: 29 kg

DRUGS (2)
  1. SINGULAIR [Suspect]
     Indication: ASTHMA
     Route: 048
     Dates: start: 20101009, end: 20101117
  2. FLUTICASONE PROPIONATE AND SALMETEROL XINAFOATE [Suspect]
     Indication: ASTHMA
     Route: 055
     Dates: start: 20101009

REACTIONS (2)
  - PAIN [None]
  - GAIT DISTURBANCE [None]
